FAERS Safety Report 25184754 (Version 2)
Quarter: 2025Q3

REPORT INFORMATION
  Report Type: Report from Study
  Country: US (occurrence: US)
  Receive Date: 20250410
  Receipt Date: 20250724
  Transmission Date: 20251021
  Serious: Yes (Hospitalization)
  Sender: ALNYLAM PHARMACEUTICALS
  Company Number: US-ALNYLAM PHARMACEUTICALS, INC.-ALN-2025-001996

PATIENT

DRUGS (2)
  1. OXLUMO [Suspect]
     Active Substance: LUMASIRAN
     Indication: Primary hyperoxaluria
     Dosage: 189 MILLIGRAM, Q3M (STRENGTH: 94.5MG)
     Route: 058
     Dates: start: 20210616, end: 20210616
  2. OXLUMO [Suspect]
     Active Substance: LUMASIRAN
     Dosage: 222 MILLIGRAM (STRENGHT 94.5 MILLIGRAM), Q3M
     Route: 058

REACTIONS (4)
  - Hospitalisation [Recovered/Resolved]
  - Weight increased [Unknown]
  - Therapy interrupted [Unknown]
  - Therapy interrupted [Unknown]

NARRATIVE: CASE EVENT DATE: 20250221
